FAERS Safety Report 20706777 (Version 1)
Quarter: 2022Q2

REPORT INFORMATION
  Report Type: Spontaneous
  Country: GB (occurrence: GB)
  Receive Date: 20220413
  Receipt Date: 20220413
  Transmission Date: 20220721
  Serious: Yes (Hospitalization, Other)
  Sender: FDA-Public Use
  Company Number: GB-EMA-DD-20190305-kakwani_d-163822

PATIENT
  Sex: Male

DRUGS (3)
  1. ARIPIPRAZOLE [Suspect]
     Active Substance: ARIPIPRAZOLE
     Indication: Product used for unknown indication
     Dosage: UNK
     Dates: start: 201902, end: 20190225
  2. CLOZARIL [Suspect]
     Active Substance: CLOZAPINE
     Indication: Schizophrenia
     Dosage: UNK, 15 MG, FREQUENCY TIME- 1 DAY
     Route: 048
     Dates: start: 20020712
  3. CLOZARIL [Suspect]
     Active Substance: CLOZAPINE
     Indication: Schizophrenia
     Dosage: 15 MILLIGRAM DAILY; 15 MILLIGRAM, QD
     Route: 048
     Dates: end: 20190220

REACTIONS (5)
  - Tachycardia [Unknown]
  - Malaise [Unknown]
  - Hyperlipidaemia [Unknown]
  - Blood test abnormal [Unknown]
  - Hypertension [Unknown]

NARRATIVE: CASE EVENT DATE: 20190220
